FAERS Safety Report 25644665 (Version 1)
Quarter: 2025Q3

REPORT INFORMATION
  Report Type: Report from Study
  Country: IN (occurrence: IN)
  Receive Date: 20250805
  Receipt Date: 20250805
  Transmission Date: 20251020
  Serious: Yes (Death, Hospitalization)
  Sender: EISAI
  Company Number: IN-Eisai-EC-2025-194365

PATIENT
  Age: 43 Year
  Sex: Female

DRUGS (1)
  1. HALAVEN [Suspect]
     Active Substance: ERIBULIN MESYLATE
     Indication: Breast cancer
     Dates: start: 20250718, end: 20250724

REACTIONS (1)
  - Infection [Fatal]

NARRATIVE: CASE EVENT DATE: 20250801
